FAERS Safety Report 20264697 (Version 1)
Quarter: 2021Q4

REPORT INFORMATION
  Report Type: Spontaneous
  Country: US (occurrence: None)
  Receive Date: 20211230
  Receipt Date: 20211230
  Transmission Date: 20220303
  Serious: No
  Sender: FDA-Public Use
  Company Number: None

PATIENT
  Sex: Female

DRUGS (1)
  1. SILDENAFIL CITRATE [Suspect]
     Active Substance: SILDENAFIL CITRATE
     Indication: Pulmonary arterial hypertension
     Dosage: FREQUENCY: 3 TIMES A DAY?
     Route: 048
     Dates: start: 20200914

REACTIONS (5)
  - Dyspnoea [None]
  - Chest pain [None]
  - Chest discomfort [None]
  - Insomnia [None]
  - Feeling abnormal [None]
